FAERS Safety Report 6017492-7 (Version None)
Quarter: 2008Q4

REPORT INFORMATION
  Report Type: 
  Country: None (occurrence: None)
  Receive Date: 20081223
  Receipt Date: 20080114
  Transmission Date: 20090506
  Serious: No
  Sender: FDA-Public Use
  Company Number: US-BRISTOL-MYERS SQUIBB COMPANY-14039259

PATIENT
  Age: 55 Year
  Sex: Female

DRUGS (1)
  1. CARDIOLITE [Suspect]
     Dates: start: 20080111, end: 20080111

REACTIONS (2)
  - OEDEMA PERIPHERAL [None]
  - URTICARIA [None]
